FAERS Safety Report 5189930-3 (Version None)
Quarter: 2006Q4

REPORT INFORMATION
  Report Type: 
  Country: None (occurrence: None)
  Receive Date: 20061218
  Receipt Date: 20061204
  Transmission Date: 20070319
  Serious: Yes (Hospitalization)
  Sender: FDA-Public Use
  Company Number: GXKR2006GB07933

PATIENT
  Sex: Male
  Weight: 68.2 kg

DRUGS (2)
  1. CIPROFLOXACIN [Suspect]
     Indication: BIOPSY PROSTATE
     Dosage: 750 MG, ORAL
     Route: 048
     Dates: start: 20050601, end: 20050603
  2. METRONIDAZOLE [Suspect]
     Indication: BIOPSY PROSTATE
     Dosage: 500 MG, RECTAL
     Route: 054
     Dates: start: 20050601, end: 20050601

REACTIONS (2)
  - COLITIS ULCERATIVE [None]
  - DIARRHOEA [None]
